FAERS Safety Report 15188670 (Version 3)
Quarter: 2018Q3

REPORT INFORMATION
  Report Type: Spontaneous
  Country: US (occurrence: US)
  Receive Date: 20180724
  Receipt Date: 20180827
  Transmission Date: 20181010
  Serious: No
  Sender: FDA-Public Use
  Company Number: US-PFIZER INC-2018295907

PATIENT
  Age: 75 Year
  Sex: Female
  Weight: 80.74 kg

DRUGS (1)
  1. GABAPENTIN. [Suspect]
     Active Substance: GABAPENTIN
     Indication: DIABETIC NEUROPATHY
     Dosage: 5 DF, DAILY (2 IN THE MORNING AND THREE AT NIGHT)
     Dates: end: 201806

REACTIONS (2)
  - Product use in unapproved indication [Unknown]
  - Pain [Unknown]
